FAERS Safety Report 9071714 (Version 1)
Quarter: 2013Q1

REPORT INFORMATION
  Report Type: Report from Study
  Country: US (occurrence: US)
  Receive Date: 20130129
  Receipt Date: 20130129
  Transmission Date: 20140127
  Serious: No
  Sender: FDA-Public Use
  Company Number: US-ABBOTT-12P-163-0926173-00

PATIENT
  Age: 42 Year
  Sex: Female

DRUGS (6)
  1. HUMIRA 40 MG/0.8 ML PEN [Suspect]
     Indication: CROHN^S DISEASE
     Dates: start: 20120328
  2. TEGRETOL [Concomitant]
     Indication: CONVULSION
     Dosage: 200 MG X 8 PILLS DAILY
  3. PHENOBARBITAL [Concomitant]
     Indication: CONVULSION
     Dosage: AT NIGHT
  4. PREDNISONE [Concomitant]
     Indication: PRODUCT USED FOR UNKNOWN INDICATION
     Dates: start: 201201, end: 20120412
  5. PREDNISONE [Concomitant]
     Dates: start: 20120412, end: 20120416
  6. PREDNISONE [Concomitant]
     Dates: start: 20120416

REACTIONS (2)
  - Weight increased [Unknown]
  - Swelling [Not Recovered/Not Resolved]
